FAERS Safety Report 5092483-1 (Version None)
Quarter: 2006Q3

REPORT INFORMATION
  Report Type: 
  Country: None (occurrence: None)
  Receive Date: 20060828
  Receipt Date: 20060815
  Transmission Date: 20061208
  Serious: Yes (Other)
  Sender: FDA-Public Use
  Company Number: 2006101777

PATIENT
  Age: 45 Year
  Sex: Male
  Weight: 96.6162 kg

DRUGS (5)
  1. CHANTIX [Suspect]
     Indication: SMOKING CESSATION THERAPY
     Dosage: 0.5 MG (0.5 MG, 1 IN 1 D)
     Dates: start: 20060809
  2. ALCOHOL (ETHANOL) [Suspect]
     Indication: DRUG USE FOR UNKNOWN INDICATION
  3. PAROXETINE HCL [Concomitant]
  4. ATENOLOL [Concomitant]
  5. NEXIUM (ESOOMEPRAZOLE) [Concomitant]

REACTIONS (3)
  - ALCOHOL INTERACTION [None]
  - ALCOHOL POISONING [None]
  - HALLUCINATION, VISUAL [None]
